FAERS Safety Report 21609618 (Version 1)
Quarter: 2022Q4

REPORT INFORMATION
  Report Type: Spontaneous
  Country: US (occurrence: US)
  Receive Date: 20221117
  Receipt Date: 20221117
  Transmission Date: 20230113
  Serious: No
  Sender: FDA-Public Use
  Company Number: US-BEH-2022151728

PATIENT
  Age: 73 Year
  Sex: Male

DRUGS (1)
  1. HIZENTRA [Suspect]
     Active Substance: HUMAN IMMUNOGLOBULIN G
     Indication: Chronic inflammatory demyelinating polyradiculoneuropathy
     Dosage: 30 GRAM
     Route: 065
     Dates: start: 20221102

REACTIONS (7)
  - Pyrexia [Recovered/Resolved]
  - Chills [Unknown]
  - Injection site pain [Unknown]
  - Feeling hot [Unknown]
  - Confusional state [Unknown]
  - Feeling abnormal [Unknown]
  - Asthenia [Unknown]

NARRATIVE: CASE EVENT DATE: 20221102
